FAERS Safety Report 4456552-9 (Version None)
Quarter: 2004Q3

REPORT INFORMATION
  Report Type: 
  Country: None (occurrence: None)
  Receive Date: 20040921
  Receipt Date: 20040913
  Transmission Date: 20050211
  Serious: Yes (Death)
  Sender: FDA-Public Use
  Company Number: US-JNJFOC-20040903629

PATIENT
  Age: 42 Year
  Sex: Female

DRUGS (4)
  1. ACETAMINOPHEN [Suspect]
  2. PROMETHAZINE [Suspect]
  3. PROPOXYPHENE HCL [Suspect]
  4. ALPRAZOLAM [Suspect]

REACTIONS (3)
  - CARDIOMEGALY [None]
  - DRUG LEVEL INCREASED [None]
  - MYOCARDIAL FIBROSIS [None]
